FAERS Safety Report 10047627 (Version 1)
Quarter: 2014Q1

REPORT INFORMATION
  Report Type: Spontaneous
  Country: CL (occurrence: CL)
  Receive Date: 20140331
  Receipt Date: 20140331
  Transmission Date: 20141002
  Serious: Yes (Other)
  Sender: FDA-Public Use
  Company Number: CL-PFIZER INC-2014087123

PATIENT
  Age: 86 Year
  Sex: Female

DRUGS (5)
  1. XALATAN [Suspect]
     Indication: GLAUCOMA
     Dosage: UNK
  2. OMEPRAZOL [Concomitant]
     Indication: GASTRITIS
     Dosage: UNK
  3. LIPOTROPIC [Concomitant]
     Indication: BLOOD CHOLESTEROL
     Dosage: UNK
  4. LOSARTAN [Concomitant]
     Dosage: UNK
  5. ASPIRIN ^BAYER^ [Concomitant]
     Indication: THROMBOSIS
     Dosage: UNK

REACTIONS (3)
  - Hearing impaired [Not Recovered/Not Resolved]
  - Immune system disorder [Not Recovered/Not Resolved]
  - Headache [Not Recovered/Not Resolved]
